FAERS Safety Report 10541327 (Version 4)
Quarter: 2014Q4

REPORT INFORMATION
  Report Type: Report from Study
  Country: BR (occurrence: BR)
  Receive Date: 20141024
  Receipt Date: 20141128
  Transmission Date: 20150529
  Serious: Yes (Other)
  Sender: FDA-Public Use
  Company Number: PHHY2014BR137553

PATIENT
  Sex: Male
  Weight: 90 kg

DRUGS (4)
  1. OMETEC [Concomitant]
     Indication: HYPERTENSION
     Dosage: 1 DF, QD
     Route: 048
     Dates: start: 201404
  2. FORASEQ [Suspect]
     Active Substance: BUDESONIDE\FORMOTEROL FUMARATE
     Dosage: 200 UG, 2 IN THE MORNING AND 2 AT NIGHT - ONE WHITE AND ONE PINK
     Route: 055
     Dates: start: 20141001
  3. FORASEQ [Suspect]
     Active Substance: BUDESONIDE\FORMOTEROL FUMARATE
     Indication: ALVEOLITIS
     Dosage: 12/400 UG
     Route: 055
  4. ROSUVASTATINA//ROSUVASTATIN [Concomitant]
     Indication: BLOOD CHOLESTEROL ABNORMAL
     Dosage: 1 DF, QD
     Route: 048

REACTIONS (2)
  - Cough [Not Recovered/Not Resolved]
  - Drug ineffective [Unknown]
